FAERS Safety Report 6338727-7 (Version None)
Quarter: 2009Q3

REPORT INFORMATION
  Report Type: 
  Country: None (occurrence: None)
  Receive Date: 20090903
  Receipt Date: 20090318
  Transmission Date: 20100115
  Serious: No
  Sender: FDA-Public Use
  Company Number: A0774017A

PATIENT
  Age: 12 Year
  Sex: Male

DRUGS (2)
  1. RELENZA [Suspect]
     Dosage: 10MG PER DAY
     Route: 055
     Dates: start: 20090311
  2. NO CONCURRENT MEDICATION [Concomitant]

REACTIONS (3)
  - CONTUSION [None]
  - PRURITUS [None]
  - RASH [None]
